FAERS Safety Report 17075202 (Version 6)
Quarter: 2022Q4

REPORT INFORMATION
  Report Type: Report from Study
  Country: US (occurrence: None)
  Receive Date: 20191126
  Receipt Date: 20221006
  Transmission Date: 20230112
  Serious: Yes (Hospitalization)
  Sender: FDA-Public Use
  Company Number: US-ROCHE-2478307

PATIENT
  Age: 64 Year
  Sex: Female
  Weight: 78 kg

DRUGS (33)
  1. ATEZOLIZUMAB [Suspect]
     Active Substance: ATEZOLIZUMAB
     Indication: Triple negative breast cancer
     Dosage: DATE OF MOST RECENT DOSE OF BLINDED ATEZOLIZUMAB PRIOR TO ADVERSE EVENT ONSET: 04/NOV/2019 (AT 15:18
     Route: 041
     Dates: start: 20190830
  2. PACLITAXEL [Suspect]
     Active Substance: PACLITAXEL
     Indication: Triple negative breast cancer
     Dosage: DATE OF MOST RECENT DOSE OF NAB-PACLITAXEL PRIOR TO ADVERSE EVENT ONSET: 11/NOV/2019 (DOSE: 189 MG A
     Route: 042
     Dates: start: 20190830
  3. ATORVASTATIN [Concomitant]
     Active Substance: ATORVASTATIN
     Indication: Hyperlipidaemia
  4. ETODOLAC [Concomitant]
     Active Substance: ETODOLAC
     Indication: Arthralgia
  5. FLUTICASONE PROPIONATE [Concomitant]
     Active Substance: FLUTICASONE PROPIONATE
     Indication: Seasonal allergy
  6. LORAZEPAM [Concomitant]
     Active Substance: LORAZEPAM
     Indication: Insomnia
  7. LORAZEPAM [Concomitant]
     Active Substance: LORAZEPAM
     Indication: Anxiety
  8. HYDROCHLOROTHIAZIDE\LOSARTAN [Concomitant]
     Active Substance: HYDROCHLOROTHIAZIDE\LOSARTAN
     Indication: Hypertension
  9. ONDANSETRON [Concomitant]
     Active Substance: ONDANSETRON
     Indication: Nausea
     Dates: start: 20190830
  10. PROCHLORPERAZINE [Concomitant]
     Active Substance: PROCHLORPERAZINE
     Indication: Nausea
     Dates: start: 20190830
  11. B COMPLEX PLUS VITAMIN C [Concomitant]
     Indication: Vitamin supplementation
  12. DOXYCYCLINE [Concomitant]
     Active Substance: DOXYCYCLINE
     Indication: Rash
     Dates: start: 20191002
  13. NEUPOGEN [Concomitant]
     Active Substance: FILGRASTIM
     Dates: start: 20191015, end: 20191016
  14. NEUPOGEN [Concomitant]
     Active Substance: FILGRASTIM
     Dates: start: 20191022, end: 20191023
  15. NEUPOGEN [Concomitant]
     Active Substance: FILGRASTIM
     Dates: start: 20191029, end: 20191030
  16. NEUPOGEN [Concomitant]
     Active Substance: FILGRASTIM
     Dates: start: 20191105, end: 20191105
  17. NEUPOGEN [Concomitant]
     Active Substance: FILGRASTIM
     Dates: start: 20191106, end: 20191106
  18. NEUPOGEN [Concomitant]
     Active Substance: FILGRASTIM
     Dates: start: 20191112, end: 20191112
  19. NEUPOGEN [Concomitant]
     Active Substance: FILGRASTIM
     Dates: start: 20191113, end: 20191113
  20. LORATADINE [Concomitant]
     Active Substance: LORATADINE
     Indication: Seasonal allergy
     Dates: start: 20190916
  21. CLINDAMYCIN [Concomitant]
     Active Substance: CLINDAMYCIN
     Indication: Rash
     Dates: start: 20191002
  22. ACETAMINOPHEN [Concomitant]
     Active Substance: ACETAMINOPHEN
     Indication: Myalgia
     Dates: start: 20191002
  23. ACETAMINOPHEN [Concomitant]
     Active Substance: ACETAMINOPHEN
     Dates: start: 20191114, end: 20191114
  24. FLONASE [Concomitant]
     Active Substance: FLUTICASONE PROPIONATE
     Indication: Epistaxis
     Dates: start: 20191021
  25. KLOR-CON [Concomitant]
     Active Substance: POTASSIUM CHLORIDE
     Indication: Hypokalaemia
     Dates: start: 20191111, end: 20191111
  26. VANCOMYCIN [Concomitant]
     Active Substance: VANCOMYCIN
     Indication: Infection prophylaxis
     Dates: start: 20191114, end: 20191114
  27. ZOSYN [Concomitant]
     Active Substance: PIPERACILLIN SODIUM\TAZOBACTAM SODIUM
     Indication: Infection prophylaxis
     Dates: start: 20191114, end: 20191114
  28. ENOXAPARIN [Concomitant]
     Active Substance: ENOXAPARIN
     Dates: start: 20191114, end: 20191114
  29. ATIVAN [Concomitant]
     Active Substance: LORAZEPAM
     Indication: Prophylaxis
     Dates: start: 20191114, end: 20191114
  30. CEFTRIAXONE [Concomitant]
     Active Substance: CEFTRIAXONE
     Indication: Infection prophylaxis
     Dates: start: 20191114, end: 20191114
  31. SENNA [Concomitant]
     Active Substance: SENNA LEAF\SENNOSIDES\SENNOSIDES A AND B
     Dates: start: 20191113, end: 20191113
  32. ESTRACE [Concomitant]
     Active Substance: ESTRADIOL
     Indication: Vulvovaginal dryness
     Dates: start: 20190828, end: 20191017
  33. IBUPROFEN [Concomitant]
     Active Substance: IBUPROFEN
     Indication: Breast pain

REACTIONS (1)
  - Syncope [Recovered/Resolved]

NARRATIVE: CASE EVENT DATE: 20191114
